FAERS Safety Report 7112466-7 (Version None)
Quarter: 2010Q4

REPORT INFORMATION
  Report Type: 
  Country: None (occurrence: None)
  Receive Date: 20101119
  Receipt Date: 20100611
  Transmission Date: 20110411
  Serious: Yes (Hospitalization, Other)
  Sender: FDA-Public Use
  Company Number: US-BAYER-201010771NA

PATIENT
  Age: 30 Year
  Sex: Female
  Weight: 65 kg

DRUGS (8)
  1. YASMIN [Suspect]
     Indication: CONTRACEPTION
     Route: 048
     Dates: start: 20030101, end: 20070101
  2. AMOXICILLIN [Concomitant]
     Dosage: UNIT DOSE: 500 MG
     Route: 048
  3. MACRODANTIN [Concomitant]
     Route: 048
  4. TOPROL-XL [Concomitant]
     Indication: HYPERTENSION
     Dosage: UNIT DOSE: 50 MG
     Route: 048
  5. BETASERON [Concomitant]
     Route: 058
  6. ZYRTEC [Concomitant]
     Route: 048
  7. PREDNISONE [Concomitant]
     Dosage: EACH DAY X 3 DAYS EACH MONTH
     Route: 048
  8. EFFEXOR XR [Concomitant]
     Route: 048

REACTIONS (5)
  - CHEST DISCOMFORT [None]
  - DEEP VEIN THROMBOSIS [None]
  - DYSPNOEA [None]
  - PAIN [None]
  - PULMONARY EMBOLISM [None]
